FAERS Safety Report 9556869 (Version 1)
Quarter: 2013Q3

REPORT INFORMATION
  Report Type: Spontaneous
  Country: US (occurrence: None)
  Receive Date: 20130726
  Receipt Date: 20130726
  Transmission Date: 20140515
  Serious: Yes (Hospitalization)
  Sender: FDA-Public Use
  Company Number: UCT-025770

PATIENT
  Age: 71 Year
  Sex: Female
  Weight: 76.82 kg

DRUGS (2)
  1. REMODULIN (10 MILLIGRAM/MILLILITERS, INJECTION FOR INFUSION) (TREPROSTINIL SODIUM) [Suspect]
     Indication: COR PULMONALE CHRONIC
     Dosage: 178.56 UG/KG (0.124 UG/KG, 1 IN 1 MIN), SUBCUTANEOUS
     Route: 058
     Dates: start: 20120907
  2. COUMADIN (WARFARIN SODIUM) [Concomitant]
     Indication: COR PULMONALE CHRONIC

REACTIONS (2)
  - Sepsis [None]
  - Staphylococcal infection [None]
